FAERS Safety Report 7316186-5 (Version None)
Quarter: 2011Q1

REPORT INFORMATION
  Report Type: 
  Country: None (occurrence: None)
  Receive Date: 20110225
  Receipt Date: 20110218
  Transmission Date: 20110831
  Serious: Yes (Hospitalization)
  Sender: FDA-Public Use
  Company Number: GB-PFIZER INC-2010150254

PATIENT
  Age: 65 Year
  Sex: Male

DRUGS (1)
  1. CELECOXIB [Suspect]
     Indication: OSTEOARTHRITIS
     Dosage: 100 MG, AS NEEDED
     Route: 048
     Dates: start: 20090108, end: 20090417

REACTIONS (1)
  - DIAPHRAGMATIC HERNIA [None]
